FAERS Safety Report 13753086 (Version 1)
Quarter: 2017Q3

REPORT INFORMATION
  Report Type: Spontaneous
  Country: US (occurrence: US)
  Receive Date: 20170713
  Receipt Date: 20170713
  Transmission Date: 20171127
  Serious: No
  Sender: FDA-Public Use
  Company Number: None

PATIENT
  Sex: Female

DRUGS (1)
  1. HUMIRA [Suspect]
     Active Substance: ADALIMUMAB
     Dosage: FREQUENCY 2/28 DAYS
     Route: 058
     Dates: start: 20161130

REACTIONS (3)
  - Photophobia [None]
  - Cyst [None]
  - Intraocular pressure increased [None]
